FAERS Safety Report 5473600-8 (Version None)
Quarter: 2007Q4

REPORT INFORMATION
  Report Type: 
  Country: None (occurrence: None)
  Receive Date: 20071001
  Receipt Date: 20070427
  Transmission Date: 20080405
  Serious: Yes (Other)
  Sender: FDA-Public Use
  Company Number: US-ASTRAZENECA-2007UW08503

PATIENT
  Age: 51 Year
  Sex: Female
  Weight: 74.8 kg

DRUGS (4)
  1. ARIMIDEX [Suspect]
     Indication: BREAST CANCER FEMALE
     Route: 048
     Dates: start: 20060201
  2. ARIMIDEX [Suspect]
     Indication: METASTASIS
     Route: 048
     Dates: start: 20060201
  3. FLOVENT [Concomitant]
  4. NAPROXEN [Concomitant]

REACTIONS (3)
  - ARTHRALGIA [None]
  - MUSCULOSKELETAL CHEST PAIN [None]
  - WEIGHT INCREASED [None]
